FAERS Safety Report 5239971-2 (Version None)
Quarter: 2007Q1

REPORT INFORMATION
  Report Type: 
  Country: None (occurrence: None)
  Receive Date: 20070216
  Receipt Date: 20070209
  Transmission Date: 20070707
  Serious: Yes (Other)
  Sender: FDA-Public Use
  Company Number: US-PFIZER INC-2006143987

PATIENT
  Sex: Female
  Weight: 39.9 kg

DRUGS (5)
  1. CHANTIX [Suspect]
     Indication: EX-SMOKER
     Route: 048
     Dates: start: 20061024, end: 20061027
  2. ZOLOFT [Suspect]
     Indication: DEPRESSION
     Route: 048
  3. WELLBUTRIN [Suspect]
     Indication: EX-SMOKER
     Dates: start: 20030101, end: 20030101
  4. ATIVAN [Concomitant]
  5. OXYGEN [Concomitant]

REACTIONS (16)
  - ACTIVITIES OF DAILY LIVING IMPAIRED [None]
  - AFFECTIVE DISORDER [None]
  - AMNESIA [None]
  - BALANCE DISORDER [None]
  - CHOKING [None]
  - CRYING [None]
  - DIZZINESS [None]
  - DRUG WITHDRAWAL SYNDROME [None]
  - FACE INJURY [None]
  - FALL [None]
  - FEELING ABNORMAL [None]
  - FUNGAL INFECTION [None]
  - GRAND MAL CONVULSION [None]
  - LIP SWELLING [None]
  - PERIORBITAL HAEMATOMA [None]
  - SUBSTANCE ABUSE [None]
